FAERS Safety Report 12773341 (Version 3)
Quarter: 2016Q4

REPORT INFORMATION
  Report Type: Report from Study
  Country: HU (occurrence: HU)
  Receive Date: 20160922
  Receipt Date: 20161215
  Transmission Date: 20170207
  Serious: Yes (Hospitalization, Other)
  Sender: FDA-Public Use
  Company Number: HU-ALEXION PHARMACEUTICALS INC-A201606821

PATIENT
  Age: 13 Month
  Sex: Male
  Weight: 8 kg

DRUGS (6)
  1. B6 [Concomitant]
     Active Substance: PYRIDOXINE HYDROCHLORIDE
     Dosage: 30 MG, BID
     Route: 048
     Dates: start: 20160911
  2. B6 [Concomitant]
     Active Substance: PYRIDOXINE HYDROCHLORIDE
     Dosage: 70 MG, SINGLE
     Route: 048
     Dates: start: 20160911, end: 20160911
  3. B6 [Concomitant]
     Active Substance: PYRIDOXINE HYDROCHLORIDE
     Indication: SEIZURE
     Dosage: 30 MG, BID
     Route: 048
     Dates: end: 201608
  4. ENB-0040 [Suspect]
     Active Substance: ASFOTASE ALFA
     Indication: HYPOPHOSPHATASIA
     Dosage: 3 MG, TIW
     Route: 058
     Dates: start: 20150911
  5. OXYGEN. [Concomitant]
     Active Substance: OXYGEN
     Indication: POSTOPERATIVE CARE
     Dosage: 0.5 L/MIN
     Route: 055
     Dates: start: 201610
  6. B6 [Concomitant]
     Active Substance: PYRIDOXINE HYDROCHLORIDE
     Dosage: 20 MG, BID
     Route: 065
     Dates: start: 201608

REACTIONS (8)
  - Laryngeal granuloma [Unknown]
  - Gastroenteritis viral [Unknown]
  - Laryngeal oedema [Unknown]
  - Increased bronchial secretion [Unknown]
  - Craniosynostosis [Unknown]
  - Seizure [Recovered/Resolved]
  - Pulmonary oedema [Not Recovered/Not Resolved]
  - Stenosis [Unknown]

NARRATIVE: CASE EVENT DATE: 20160911
